APPROVED DRUG PRODUCT: GEMCITABINE HYDROCHLORIDE
Active Ingredient: GEMCITABINE HYDROCHLORIDE
Strength: 200MG/5.26ML (38MG/ML)
Dosage Form/Route: INJECTABLE;INJECTION
Application: N200795 | Product #001 | TE Code: AP
Applicant: HOSPIRA INC
Approved: Aug 4, 2011 | RLD: Yes | RS: Yes | Type: RX